FAERS Safety Report 21002961 (Version 1)
Quarter: 2022Q2

REPORT INFORMATION
  Report Type: Spontaneous
  Country: FR (occurrence: FR)
  Receive Date: 20220624
  Receipt Date: 20220624
  Transmission Date: 20220720
  Serious: Yes (Other)
  Sender: FDA-Public Use
  Company Number: FR-ANTARES PHARMA, INC.-2022-LIT-TX-0597

PATIENT

DRUGS (1)
  1. TESTOSTERONE ENANTHATE [Suspect]
     Active Substance: TESTOSTERONE ENANTHATE
     Indication: Transgender hormonal therapy
     Dosage: 250 MILLIGRAM, UNKNOWN
     Route: 030

REACTIONS (3)
  - Diabetic ketoacidosis [Unknown]
  - Pulmonary embolism [Unknown]
  - Product use in unapproved indication [Recovered/Resolved]
